FAERS Safety Report 8142652-9 (Version None)
Quarter: 2012Q1

REPORT INFORMATION
  Report Type: 
  Country: None (occurrence: None)
  Receive Date: 20120216
  Receipt Date: 20120214
  Transmission Date: 20120608
  Serious: Yes (Hospitalization)
  Sender: FDA-Public Use
  Company Number: US-GILEAD-2011-0045202

PATIENT
  Sex: Female

DRUGS (17)
  1. COUMADIN [Concomitant]
  2. LETAIRIS [Suspect]
  3. CELEXA [Concomitant]
  4. XANAX [Concomitant]
  5. REVATIO [Concomitant]
  6. LETAIRIS [Suspect]
     Indication: SLEEP APNOEA SYNDROME
  7. DALTEPARIN SODIUM [Concomitant]
  8. FUROSEMIDE [Concomitant]
  9. ASCORBIC ACID [Concomitant]
  10. BUPROPION HCL [Concomitant]
  11. CALCIUM CARBONATE W/VITAMIN D      /00944201/ [Concomitant]
  12. CEFEPIME [Concomitant]
  13. LETAIRIS [Suspect]
     Indication: PULMONARY HYPERTENSION
     Dosage: 10 MG, UNK
     Route: 048
     Dates: start: 20080909
  14. LETAIRIS [Suspect]
     Indication: DRUG ABUSE
  15. ATOMOXETINE HCL [Concomitant]
  16. FRAGMIN [Concomitant]
  17. FLOLAN [Concomitant]

REACTIONS (1)
  - DEVICE RELATED INFECTION [None]
